FAERS Safety Report 4566923-8 (Version None)
Quarter: 2005Q1

REPORT INFORMATION
  Report Type: 
  Country: None (occurrence: None)
  Receive Date: 20050201
  Receipt Date: 20030409
  Transmission Date: 20050727
  Serious: Yes (Other)
  Sender: FDA-Public Use
  Company Number: US-BRISTOL-MYERS SQUIBB COMPANY-12244711

PATIENT
  Age: 45 Year
  Sex: Male

DRUGS (6)
  1. STADOL [Suspect]
     Indication: PAIN
     Route: 045
     Dates: start: 19920901, end: 19960101
  2. DIAZEPAM [Concomitant]
  3. CYCLOBENZAPRINE [Concomitant]
  4. PROPOXYPHENE [Concomitant]
  5. PERCOCET [Concomitant]
  6. HYDROCODONE [Concomitant]

REACTIONS (3)
  - DEPENDENCE [None]
  - INFECTION [None]
  - SINUS CONGESTION [None]
